FAERS Safety Report 7642586-X (Version None)
Quarter: 2011Q3

REPORT INFORMATION
  Report Type: 
  Country: None (occurrence: None)
  Receive Date: 20110728
  Receipt Date: 20110718
  Transmission Date: 20111222
  Serious: Yes (Hospitalization)
  Sender: FDA-Public Use
  Company Number: US-CELGENEUS-163-21880-11072139

PATIENT
  Sex: Female
  Weight: 85.806 kg

DRUGS (2)
  1. REVLIMID [Suspect]
     Dosage: 25 MILLIGRAM
     Route: 048
     Dates: start: 20090924
  2. REVLIMID [Suspect]
     Dosage: 10 MILLIGRAM
     Route: 048
     Dates: start: 20091009

REACTIONS (3)
  - RENAL DISORDER [None]
  - MALAISE [None]
  - FULL BLOOD COUNT ABNORMAL [None]
